FAERS Safety Report 7015472-6 (Version None)
Quarter: 2010Q3

REPORT INFORMATION
  Report Type: 
  Country: None (occurrence: None)
  Receive Date: 20100923
  Receipt Date: 20100913
  Transmission Date: 20110219
  Serious: Yes (Hospitalization)
  Sender: FDA-Public Use
  Company Number: TIR-00222

PATIENT
  Age: 23 Year
  Sex: Female

DRUGS (1)
  1. LEVOTHYROXINE SODIUM [Suspect]
     Dosage: 25 MG ONCE (250 TABLETS OF 100 MCG EACH) ORAL
     Route: 048

REACTIONS (10)
  - BLOOD THROMBIN INCREASED [None]
  - COAGULATION FACTOR IX LEVEL INCREASED [None]
  - COAGULATION FACTOR VIII LEVEL INCREASED [None]
  - COAGULATION FACTOR X LEVEL INCREASED [None]
  - COAGULOPATHY [None]
  - INTENTIONAL OVERDOSE [None]
  - PLASMINOGEN ACTIVATOR INHIBITOR INCREASED [None]
  - SUICIDE ATTEMPT [None]
  - VON WILLEBRAND'S FACTOR ACTIVITY INCREASED [None]
  - VON WILLEBRAND'S FACTOR ANTIGEN INCREASED [None]
